FAERS Safety Report 16049722 (Version 2)
Quarter: 2019Q2

REPORT INFORMATION
  Report Type: Report from Study
  Country: None (occurrence: US)
  Receive Date: 20190307
  Receipt Date: 20190416
  Transmission Date: 20190711
  Serious: Yes (Other)
  Sender: FDA-Public Use
  Company Number: US-ABBVIE-19K-163-2691093-00

PATIENT
  Age: 19 Year
  Sex: Male
  Weight: 83.99 kg

DRUGS (3)
  1. HUMIRA [Suspect]
     Active Substance: ADALIMUMAB
     Indication: HIDRADENITIS
     Route: 058
     Dates: start: 201811
  2. PREDNISONE. [Concomitant]
     Active Substance: PREDNISONE
     Indication: HIDRADENITIS
  3. HUMIRA [Suspect]
     Active Substance: ADALIMUMAB
     Indication: HIDRADENITIS
     Route: 058
     Dates: start: 20180828, end: 201811

REACTIONS (3)
  - Joint range of motion decreased [Unknown]
  - Skin injury [Recovered/Resolved]
  - Adhesion [Recovered/Resolved]

NARRATIVE: CASE EVENT DATE: 201808
